FAERS Safety Report 12376153 (Version 17)
Quarter: 2018Q2

REPORT INFORMATION
  Report Type: Report from Study
  Country: CZ (occurrence: CZ)
  Receive Date: 20160517
  Receipt Date: 20180608
  Transmission Date: 20180711
  Serious: Yes (Hospitalization)
  Sender: FDA-Public Use
  Company Number: CZ-SA-2016SA094940

PATIENT
  Age: 27 Year
  Sex: Female
  Weight: 53 kg

DRUGS (19)
  1. NEURONTIN [Concomitant]
     Active Substance: GABAPENTIN
     Indication: MULTIPLE SCLEROSIS
     Dosage: 100 MG,QD
     Route: 048
     Dates: start: 20150210
  2. ACICLOVIR [Concomitant]
     Active Substance: ACYCLOVIR
     Indication: PROPHYLAXIS
     Dosage: 400 MG,QD
     Route: 048
     Dates: start: 20160425
  3. ACICLOVIR [Concomitant]
     Active Substance: ACYCLOVIR
     Dosage: 200 MG,BID
     Route: 065
     Dates: end: 20160529
  4. BENFOTIAMINE [Concomitant]
     Active Substance: BENFOTIAMINE
     Dosage: 2 ML,QD
     Route: 030
  5. OMEPRAZOLE. [Concomitant]
     Active Substance: OMEPRAZOLE
     Indication: PROPHYLAXIS
     Dosage: 20 MG,QD
     Route: 048
     Dates: start: 20160510
  6. ZOLOFT [Concomitant]
     Active Substance: SERTRALINE HYDROCHLORIDE
     Dosage: 50 MG,QD
     Route: 048
  7. MAGNOSOLV [Concomitant]
     Indication: MULTIPLE SCLEROSIS
     Dosage: 365 MG,QD
     Route: 048
     Dates: start: 20140415
  8. DITHIADEN [Concomitant]
     Active Substance: BISULEPIN
     Indication: PROPHYLAXIS
     Dosage: 2 MG,QD
     Route: 048
     Dates: start: 20160425, end: 20160429
  9. ZOLOFT [Concomitant]
     Active Substance: SERTRALINE HYDROCHLORIDE
     Indication: MULTIPLE SCLEROSIS
     Dosage: 50 MG,QD
     Route: 048
     Dates: start: 20150210
  10. ACICLOVIR [Concomitant]
     Active Substance: ACYCLOVIR
     Dosage: 750 MG,QD
     Route: 048
     Dates: start: 20160510
  11. FRAXIPARINE [Concomitant]
     Active Substance: NADROPARIN CALCIUM
     Dosage: UNK UNK,UNK
     Route: 058
  12. DEGAN [Concomitant]
     Active Substance: METOCLOPRAMIDE HYDROCHLORIDE
     Indication: PROPHYLAXIS
     Dosage: 10 MG,QD
     Route: 048
     Dates: start: 20160510
  13. ZYRTEC [Concomitant]
     Active Substance: CETIRIZINE HYDROCHLORIDE
     Dosage: 10 MG,QD
     Route: 065
  14. COLECALCIFEROL [Concomitant]
     Active Substance: CHOLECALCIFEROL
     Dosage: 3 DF,QD
     Route: 047
  15. PARACETAMOL [Concomitant]
     Active Substance: ACETAMINOPHEN
     Indication: PROPHYLAXIS
     Dosage: 500 MG,QD
     Route: 048
     Dates: start: 20160425, end: 20160429
  16. BENSERAZIDE;FERROUS SULFATE [Concomitant]
     Dosage: UNK UNK,QD
     Route: 065
  17. ALEMTUZUMAB [Suspect]
     Active Substance: ALEMTUZUMAB
     Indication: MULTIPLE SCLEROSIS RELAPSE
     Dosage: 12 MG,QD
     Route: 041
     Dates: start: 20160425, end: 20160429
  18. METHYLPREDNISOLONE. [Concomitant]
     Active Substance: METHYLPREDNISOLONE
     Dosage: UNK UNK,UNK
     Route: 065
  19. METAMIZOLE SODIUM [Concomitant]
     Active Substance: METAMIZOLE SODIUM
     Dosage: 500 MG,TID
     Route: 048

REACTIONS (11)
  - Vomiting [Recovered/Resolved]
  - Multiple sclerosis relapse [Recovered/Resolved]
  - Multiple sclerosis relapse [Recovered/Resolved]
  - Headache [Recovered/Resolved]
  - Asthenia [Unknown]
  - Meningism [Unknown]
  - CSF oligoclonal band present [Recovered/Resolved]
  - Meningitis listeria [Recovered/Resolved]
  - Pyrexia [Recovered/Resolved]
  - Multiple sclerosis relapse [Recovered/Resolved]
  - Urticaria [Recovered/Resolved]

NARRATIVE: CASE EVENT DATE: 20160428
